FAERS Safety Report 6048045-2 (Version None)
Quarter: 2009Q1

REPORT INFORMATION
  Report Type: 
  Country: None (occurrence: None)
  Receive Date: 20090123
  Receipt Date: 20090112
  Transmission Date: 20090719
  Serious: Yes (Death, Hospitalization)
  Sender: FDA-Public Use
  Company Number: DE-PFIZER INC-2006022706

PATIENT

DRUGS (13)
  1. SUNITINIB MALATE [Suspect]
     Indication: METASTATIC RENAL CELL CARCINOMA
     Dosage: DAILY
     Route: 048
     Dates: start: 20051228, end: 20060126
  2. NOVALGIN [Concomitant]
     Route: 048
     Dates: start: 20060114
  3. METOCLOPRAMIDE [Concomitant]
     Dosage: UNK
     Route: 048
     Dates: start: 20060114
  4. LACTULOSE [Concomitant]
     Dosage: UNK
     Route: 048
     Dates: start: 20060115
  5. SIMETICONE [Concomitant]
     Dosage: UNK
     Route: 048
     Dates: start: 20060116
  6. DRONABINOL [Concomitant]
     Route: 048
     Dates: start: 20060119
  7. FENTANYL CITRATE [Concomitant]
     Route: 062
     Dates: start: 20060114
  8. NALOXONE [Concomitant]
     Dosage: UNK
     Route: 048
     Dates: start: 20060112
  9. TRAMADOL [Concomitant]
     Dosage: UNK
     Route: 048
     Dates: start: 20051208, end: 20060113
  10. MORPHINE SULFATE [Concomitant]
     Dosage: UNK
     Route: 048
     Dates: start: 20060113
  11. DIMENHYDRINATE [Concomitant]
     Dosage: UNK
     Dates: start: 20060119, end: 20060119
  12. DIAZEPAM [Concomitant]
     Dosage: UNK
     Route: 048
     Dates: start: 20060121, end: 20060122
  13. MULTIBIONTA [Concomitant]
     Dosage: UNK
     Route: 048
     Dates: start: 20060122, end: 20060123

REACTIONS (4)
  - EPILEPSY [None]
  - FLANK PAIN [None]
  - MULTI-ORGAN FAILURE [None]
  - RENAL FAILURE [None]
